FAERS Safety Report 25683897 (Version 1)
Quarter: 2025Q3

REPORT INFORMATION
  Report Type: Spontaneous
  Country: US (occurrence: US)
  Receive Date: 20250815
  Receipt Date: 20250815
  Transmission Date: 20251020
  Serious: Yes (Other)
  Sender: AMGEN
  Company Number: US-AMGEN-USASP2025157640

PATIENT
  Age: 59 Year
  Sex: Male

DRUGS (3)
  1. BEVACIZUMAB [Suspect]
     Active Substance: BEVACIZUMAB
     Indication: Hepatocellular carcinoma
     Route: 065
  2. ATEZOLIZUMAB [Concomitant]
     Active Substance: ATEZOLIZUMAB
     Indication: Hepatocellular carcinoma
  3. CABOZANTINIB [Concomitant]
     Active Substance: CABOZANTINIB

REACTIONS (4)
  - Metastases to liver [Unknown]
  - Hepatocellular carcinoma [Recovering/Resolving]
  - Metastases to lung [Unknown]
  - Off label use [Unknown]
